FAERS Safety Report 25730397 (Version 2)
Quarter: 2025Q3

REPORT INFORMATION
  Report Type: Report from Study
  Country: US (occurrence: US)
  Receive Date: 20250827
  Receipt Date: 20250923
  Transmission Date: 20251020
  Serious: Yes (Other)
  Sender: SUNOVION
  Company Number: US-SUMITOMO PHARMA SWITZERLAND GMBH-2025SPA010170

PATIENT
  Age: 92 Year
  Sex: Male

DRUGS (5)
  1. ORGOVYX [Suspect]
     Active Substance: RELUGOLIX
     Indication: Prostate cancer
     Route: 048
     Dates: start: 20250802, end: 20250802
  2. ORGOVYX [Suspect]
     Active Substance: RELUGOLIX
     Route: 048
  3. VITAMINS [Concomitant]
     Active Substance: VITAMINS
  4. PROCHLORPERAZINE [Concomitant]
     Active Substance: PROCHLORPERAZINE
  5. OPDUALAG [Concomitant]
     Active Substance: NIVOLUMAB\RELATLIMAB-RMBW

REACTIONS (3)
  - Skin neoplasm excision [Unknown]
  - Headache [Unknown]
  - Fatigue [Unknown]
